FAERS Safety Report 20332801 (Version 1)
Quarter: 2022Q1

REPORT INFORMATION
  Report Type: Spontaneous
  Country: IT (occurrence: IT)
  Receive Date: 20220113
  Receipt Date: 20220113
  Transmission Date: 20220423
  Serious: Yes (Life-Threatening, Other)
  Sender: FDA-Public Use
  Company Number: IT-AstraZeneca-2021A861455

PATIENT
  Age: 75 Year
  Sex: Female

DRUGS (4)
  1. QUETIAPINE FUMARATE [Suspect]
     Active Substance: QUETIAPINE FUMARATE
     Dosage: UNK
     Route: 048
  2. ZOLPIDEM TARTRATE [Suspect]
     Active Substance: ZOLPIDEM TARTRATE
     Dosage: UNK
  3. MIRTAZAPINE [Suspect]
     Active Substance: MIRTAZAPINE
     Dosage: UNK
  4. DELORAZEPAM [Suspect]
     Active Substance: DELORAZEPAM
     Dosage: UNK

REACTIONS (5)
  - Suicide attempt [Unknown]
  - Respiratory failure [Unknown]
  - Pulmonary embolism [Unknown]
  - Hyponatraemia [Unknown]
  - Intentional product misuse [Unknown]
